FAERS Safety Report 17141063 (Version 1)
Quarter: 2019Q4

REPORT INFORMATION
  Report Type: Report from Study
  Country: US (occurrence: US)
  Receive Date: 20191211
  Receipt Date: 20191211
  Transmission Date: 20200122
  Serious: Yes (Death, Hospitalization, Other)
  Sender: FDA-Public Use
  Company Number: US-PUMA BIOTECHNOLOGY, LTD.-2019US011390

PATIENT

DRUGS (3)
  1. NERLYNX [Suspect]
     Active Substance: NERATINIB
     Indication: METASTASES TO LIVER
     Dosage: 6 TABLETS, DAILY
     Route: 048
     Dates: start: 20191105, end: 2019
  2. NERLYNX [Suspect]
     Active Substance: NERATINIB
     Indication: CHOLANGIOCARCINOMA
  3. CAPECITABINE. [Concomitant]
     Active Substance: CAPECITABINE
     Indication: PRODUCT USED FOR UNKNOWN INDICATION
     Dosage: 1000 MG, BID

REACTIONS (8)
  - Diarrhoea [Unknown]
  - Metastases to liver [Unknown]
  - Cholangiocarcinoma [Unknown]
  - Off label use [Unknown]
  - Death [Fatal]
  - Confusional state [Unknown]
  - Dehydration [Unknown]
  - Abdominal pain upper [Unknown]

NARRATIVE: CASE EVENT DATE: 2019
